FAERS Safety Report 5462433-4 (Version None)
Quarter: 2007Q3

REPORT INFORMATION
  Report Type: 
  Country: None (occurrence: None)
  Receive Date: 20070814
  Receipt Date: 20060501
  Transmission Date: 20080115
  Serious: Yes (Hospitalization)
  Sender: FDA-Public Use
  Company Number: SP00848

PATIENT
  Age: 78 Year
  Sex: Male
  Weight: 89.8122 kg

DRUGS (5)
  1. COLAZAL [Suspect]
     Indication: COLITIS ULCERATIVE
     Dosage: 2.25G/TID,ORAL
     Route: 048
     Dates: start: 20060201
  2. MUCOLEX [Concomitant]
  3. SYNTHROID [Concomitant]
  4. DIOVAN [Concomitant]
  5. TOPROL-XL [Concomitant]

REACTIONS (2)
  - DYSPNOEA [None]
  - SINUSITIS [None]
